FAERS Safety Report 8560621-1 (Version None)
Quarter: 2012Q3

REPORT INFORMATION
  Report Type: 
  Country: None (occurrence: None)
  Receive Date: 20120802
  Receipt Date: 20120731
  Transmission Date: 20120928
  Serious: Yes (Congenital Anomaly)
  Sender: FDA-Public Use
  Company Number: FR-GILEAD-2012-0058341

PATIENT
  Sex: Male

DRUGS (3)
  1. TRUVADA [Suspect]
     Indication: HIV INFECTION CDC CATEGORY B2
     Dosage: 1 DF (200/245MG), QD
     Route: 064
  2. REYATAZ [Suspect]
     Indication: HIV INFECTION CDC CATEGORY B2
     Dosage: 2 DF, QD
     Route: 064
  3. NORVIR [Suspect]
     Indication: HIV INFECTION CDC CATEGORY B2
     Dosage: 1 DF, QD
     Route: 064

REACTIONS (1)
  - NAEVUS FLAMMEUS [None]
